FAERS Safety Report 6574288-5 (Version None)
Quarter: 2010Q1

REPORT INFORMATION
  Report Type: 
  Country: None (occurrence: None)
  Receive Date: 20100201
  Receipt Date: 20100115
  Transmission Date: 20100710
  Serious: Yes (Other)
  Sender: FDA-Public Use
  Company Number: AUR-APL-2010-00226

PATIENT
  Sex: Female

DRUGS (4)
  1. SIMVASTATIN [Suspect]
     Indication: BLOOD CHOLESTEROL
     Dosage: 40MG, DAILY
  2. TRILAFON [Suspect]
     Indication: PSYCHOTIC DISORDER
     Dosage: 16MG, DAILY ORAL
     Route: 048
  3. SEROQUEL [Suspect]
     Indication: PSYCHOTIC DISORDER
     Dosage: 600MG ORAL
     Route: 048
  4. KEMADRIN [Suspect]
     Indication: ADVERSE EVENT
     Dosage: 5MG BID ORAL
     Route: 048

REACTIONS (8)
  - DIZZINESS [None]
  - FATIGUE [None]
  - HEART RATE IRREGULAR [None]
  - LISTLESS [None]
  - MUSCLE SPASMS [None]
  - STRESS [None]
  - VISUAL ACUITY REDUCED [None]
  - WEIGHT INCREASED [None]
